FAERS Safety Report 7248030-9 (Version None)
Quarter: 2011Q1

REPORT INFORMATION
  Report Type: 
  Country: None (occurrence: None)
  Receive Date: 20110127
  Receipt Date: 20110124
  Transmission Date: 20110831
  Serious: Yes (Hospitalization, Other)
  Sender: FDA-Public Use
  Company Number: SE-PFIZER INC-2011016085

PATIENT
  Age: 76 Year
  Sex: Female

DRUGS (8)
  1. SIMVASTATIN [Concomitant]
  2. METOPROLOL [Concomitant]
  3. ATACAND [Concomitant]
  4. ASASANTIN RETARD [Concomitant]
  5. CITALOPRAM [Concomitant]
  6. DETRUSITOL [Suspect]
     Indication: URINARY INCONTINENCE
     Dosage: UNK
     Route: 048
     Dates: end: 20101120
  7. FELODIPINE [Concomitant]
  8. ACETAMINOPHEN [Concomitant]

REACTIONS (4)
  - URINARY RETENTION [None]
  - PERSONALITY CHANGE [None]
  - AMNESIA [None]
  - URINARY TRACT INFECTION [None]
